FAERS Safety Report 7051677-6 (Version None)
Quarter: 2010Q4

REPORT INFORMATION
  Report Type: 
  Country: None (occurrence: None)
  Receive Date: 20101018
  Receipt Date: 20101018
  Transmission Date: 20110411
  Serious: Yes (Other)
  Sender: FDA-Public Use
  Company Number: None

PATIENT
  Sex: Male
  Weight: 63 kg

DRUGS (1)
  1. LAMITOR OD 100 MG TORRENT PHARMACEUTICAL [Suspect]
     Indication: BIPOLAR DISORDER
     Dosage: 100MG 1 PO
     Route: 048

REACTIONS (7)
  - ABDOMINAL PAIN UPPER [None]
  - EYE IRRITATION [None]
  - GROIN PAIN [None]
  - OCULAR HYPERAEMIA [None]
  - SENSATION OF HEAVINESS [None]
  - TESTICULAR PAIN [None]
  - URINE ABNORMALITY [None]
